FAERS Safety Report 6044731-9 (Version None)
Quarter: 2009Q1

REPORT INFORMATION
  Report Type: 
  Country: None (occurrence: None)
  Receive Date: 20090120
  Receipt Date: 20090112
  Transmission Date: 20090719
  Serious: No
  Sender: FDA-Public Use
  Company Number: US-B.I. PHARMACEUTICALS,INC./RIDGEFIELD-2009-BP-00386BP

PATIENT
  Age: 46 Year
  Sex: Male

DRUGS (2)
  1. ZANTAC 150 [Suspect]
     Route: 048
     Dates: start: 20081101
  2. IBUPROFEN [Concomitant]
     Route: 048

REACTIONS (2)
  - INCORRECT DOSE ADMINISTERED [None]
  - URINE AMPHETAMINE POSITIVE [None]
